FAERS Safety Report 21590859 (Version 1)
Quarter: 2022Q4

REPORT INFORMATION
  Report Type: Spontaneous
  Country: US (occurrence: None)
  Receive Date: 20221111
  Receipt Date: 20221111
  Transmission Date: 20230112
  Serious: Yes (Disabling, Congenital Anomaly)
  Sender: FDA-Public Use
  Company Number: None

PATIENT
  Age: 0 Year
  Sex: Male
  Weight: 15.75 kg

DRUGS (2)
  1. UNISOM SLEEPTABS [Suspect]
     Active Substance: DOXYLAMINE SUCCINATE
     Indication: Morning sickness
  2. Melatonin 1 MG QHS [Concomitant]

REACTIONS (9)
  - Exposure during pregnancy [None]
  - Maternal drugs affecting foetus [None]
  - Labial tie [None]
  - Poor feeding infant [None]
  - Speech disorder developmental [None]
  - Autism spectrum disorder [None]
  - Developmental delay [None]
  - Dyskinesia [None]
  - Insomnia [None]

NARRATIVE: CASE EVENT DATE: 20190616
